FAERS Safety Report 19416765 (Version 1)
Quarter: 2021Q2

REPORT INFORMATION
  Report Type: Spontaneous
  Country: US (occurrence: US)
  Receive Date: 20210614
  Receipt Date: 20210614
  Transmission Date: 20210717
  Serious: No
  Sender: FDA-Public Use
  Company Number: NVSC2021US126529

PATIENT
  Sex: Female
  Weight: 46.27 kg

DRUGS (5)
  1. VIVELLE?DOT [Suspect]
     Active Substance: ESTRADIOL
     Indication: PRODUCT USED FOR UNKNOWN INDICATION
     Dosage: UNK
     Route: 065
  2. ESTRADIOL. [Suspect]
     Active Substance: ESTRADIOL
     Indication: PRODUCT USED FOR UNKNOWN INDICATION
     Dosage: UNK
     Route: 065
  3. ESTRING [Suspect]
     Active Substance: ESTRADIOL
     Indication: PRODUCT USED FOR UNKNOWN INDICATION
     Dosage: UNK, 2MG ESTRADIOL CONTINUOUSLY RELEASED DAILY FOR 90 DAYS; INSERTED VAGINALLY
     Route: 065
     Dates: start: 201906
  4. YUVAFEM [Suspect]
     Active Substance: ESTRADIOL HEMIHYDRATE
     Indication: PRODUCT USED FOR UNKNOWN INDICATION
     Dosage: UNK, 10MCG OF ESTRADIOL AND SHE INSERTED THEM TWO TIMES PER WEEK
     Route: 065
  5. VAGIFEM [Suspect]
     Active Substance: ESTRADIOL
     Indication: PRODUCT USED FOR UNKNOWN INDICATION
     Dosage: UNK, 10MCG OF ESTRADIOL AND SHE INSERTED THEM TWO TIMES PER WEEK
     Route: 065

REACTIONS (5)
  - Atrophic vulvovaginitis [Unknown]
  - Dyspareunia [Unknown]
  - Drug ineffective [Unknown]
  - Vulvovaginal dryness [Unknown]
  - Urinary tract infection [Unknown]
